FAERS Safety Report 10674637 (Version 2)
Quarter: 2014Q4

REPORT INFORMATION
  Report Type: Spontaneous
  Country: FR (occurrence: FR)
  Receive Date: 20141224
  Receipt Date: 20141224
  Transmission Date: 20150529
  Serious: Yes (Hospitalization)
  Sender: FDA-Public Use
  Company Number: FR-CELGENE-056-21880-13070030

PATIENT
  Age: 79 Year
  Sex: Female
  Weight: 65 kg

DRUGS (23)
  1. ZOMETA [Concomitant]
     Active Substance: ZOLEDRONIC ACID
     Indication: CHEST PAIN
  2. REVLIMID [Suspect]
     Active Substance: LENALIDOMIDE
     Indication: PLASMA CELL MYELOMA
     Route: 048
     Dates: start: 20130304, end: 20130627
  3. MLN9708/PLACEBO [Suspect]
     Active Substance: IXAZOMIB
     Indication: PLASMA CELL MYELOMA
     Dosage: 4 MILLIGRAM
     Route: 048
     Dates: start: 20130304, end: 20130627
  4. ACTISKENAN [Concomitant]
     Active Substance: MORPHINE SULFATE
     Indication: PELVIC PAIN
     Route: 065
     Dates: start: 20130311
  5. DUROGESIC [Concomitant]
     Active Substance: FENTANYL
     Indication: PELVIC PAIN
     Route: 065
     Dates: start: 20130313
  6. LAROXYL [Concomitant]
     Active Substance: AMITRIPTYLINE
     Indication: PAIN
     Route: 065
  7. MORPHINE [Concomitant]
     Active Substance: MORPHINE
     Indication: PAIN
     Route: 065
  8. EPOETIN ZETA [Concomitant]
     Active Substance: ERYTHROPOIETIN
     Indication: ANAEMIA
     Route: 065
     Dates: start: 20130417
  9. LOVENOX [Concomitant]
     Active Substance: ENOXAPARIN SODIUM
     Route: 065
  10. MATRIFEN [Concomitant]
     Active Substance: FENTANYL
     Route: 065
     Dates: start: 20130531
  11. OXYNORM [Concomitant]
     Active Substance: OXYCODONE HYDROCHLORIDE
     Route: 065
  12. VOGALEN LYOPHILISE [Concomitant]
     Indication: NAUSEA
  13. OXYNORM [Concomitant]
     Active Substance: OXYCODONE HYDROCHLORIDE
     Indication: CHEST PAIN
     Route: 065
  14. ZOMETA [Concomitant]
     Active Substance: ZOLEDRONIC ACID
     Indication: BONE PAIN
     Route: 065
     Dates: start: 20130531
  15. TRANSIPEG [Concomitant]
     Active Substance: POLYETHYLENE GLYCOL 3350
     Indication: CONSTIPATION
     Route: 065
  16. DEXAMETHASONE. [Suspect]
     Active Substance: DEXAMETHASONE
     Indication: PLASMA CELL MYELOMA
     Route: 048
     Dates: start: 20130304, end: 20130627
  17. MATRIFEN [Concomitant]
     Active Substance: FENTANYL
     Indication: FRACTURE PAIN
     Route: 065
     Dates: start: 20130424, end: 20130531
  18. LOVENOX [Concomitant]
     Active Substance: ENOXAPARIN SODIUM
     Indication: THROMBOSIS
     Route: 065
     Dates: start: 20130417
  19. PRIMPERAN [Concomitant]
     Active Substance: METOCLOPRAMIDE HYDROCHLORIDE
     Indication: FEEDING DISORDER
     Route: 065
     Dates: start: 20130424
  20. VOGALEN LYOPHILISE [Concomitant]
     Indication: FEEDING DISORDER
     Route: 065
     Dates: start: 20130531
  21. ACTISKENAN [Concomitant]
     Active Substance: MORPHINE SULFATE
     Route: 065
  22. TRT BIPHOSPHONATE [Concomitant]
     Indication: BONE PAIN
     Route: 065
     Dates: start: 20130531
  23. OXYCONTIN [Concomitant]
     Active Substance: OXYCODONE HYDROCHLORIDE
     Indication: CHEST PAIN
     Dosage: 120 MILLIGRAM
     Route: 065

REACTIONS (2)
  - Sternal fracture [Not Recovered/Not Resolved]
  - Fracture pain [Not Recovered/Not Resolved]

NARRATIVE: CASE EVENT DATE: 20130628
